FAERS Safety Report 24317517 (Version 1)
Quarter: 2024Q3

REPORT INFORMATION
  Report Type: Spontaneous
  Country: US (occurrence: US)
  Receive Date: 20240913
  Receipt Date: 20240913
  Transmission Date: 20241016
  Serious: No
  Sender: CSPC OUYI PHARMACEUTICAL
  Company Number: US-CSPC Ouyi Pharmaceutical Co., Ltd.-2161548

PATIENT
  Age: 41 Year
  Sex: Male
  Weight: 78.636 kg

DRUGS (1)
  1. CARBAMAZEPINE [Suspect]
     Active Substance: CARBAMAZEPINE
     Indication: Epilepsy
     Route: 048

REACTIONS (1)
  - Drug ineffective [Unknown]
